FAERS Safety Report 12930508 (Version 1)
Quarter: 2016Q4

REPORT INFORMATION
  Report Type: Spontaneous
  Country: US (occurrence: US)
  Receive Date: 20161111
  Receipt Date: 20161111
  Transmission Date: 20170207
  Serious: Yes (Death, Hospitalization)
  Sender: FDA-Public Use
  Company Number: None

PATIENT
  Age: 20 Year
  Sex: Male
  Weight: 60 kg

DRUGS (4)
  1. CYTARABINE. [Suspect]
     Active Substance: CYTARABINE
     Dates: end: 20120510
  2. PREDNISONE. [Suspect]
     Active Substance: PREDNISONE
     Dates: end: 20120518
  3. VINCRISTINE SULFATE. [Suspect]
     Active Substance: VINCRISTINE SULFATE
     Dates: end: 20120510
  4. DAUNORUBICIN [Suspect]
     Active Substance: DAUNORUBICIN
     Dates: end: 20120522

REACTIONS (7)
  - Subarachnoid haemorrhage [None]
  - Liver disorder [None]
  - Mucormycosis [None]
  - Fungal infection [None]
  - Oral herpes [None]
  - Oral disorder [None]
  - Aspergillus infection [None]

NARRATIVE: CASE EVENT DATE: 20120525
